FAERS Safety Report 10792036 (Version 1)
Quarter: 2015Q1

REPORT INFORMATION
  Report Type: Spontaneous
  Country: US (occurrence: US)
  Receive Date: 20150213
  Receipt Date: 20150213
  Transmission Date: 20150721
  Serious: Yes (Other)
  Sender: FDA-Public Use
  Company Number: US-BAYER-2015-014626

PATIENT
  Sex: Female

DRUGS (2)
  1. TRUHEART [Suspect]
     Active Substance: DIETARY SUPPLEMENT
     Indication: HYPERCHOLESTEROLAEMIA
     Dosage: 4 DF, QD
     Route: 048
  2. BAYER LOW DOSE [Suspect]
     Active Substance: ASPIRIN
     Indication: PRODUCT USED FOR UNKNOWN INDICATION
     Dosage: 81 MG, QD

REACTIONS (6)
  - Dyspnoea [Unknown]
  - Malaise [Unknown]
  - Medication error [None]
  - Abdominal discomfort [None]
  - Nausea [Unknown]
  - Drug ineffective [Unknown]
